FAERS Safety Report 13759234 (Version 1)
Quarter: 2017Q3

REPORT INFORMATION
  Report Type: Spontaneous
  Country: US (occurrence: US)
  Receive Date: 20170717
  Receipt Date: 20170717
  Transmission Date: 20171127
  Serious: Yes (Life-Threatening, Hospitalization, Disabling, Other)
  Sender: FDA-Public Use
  Company Number: None

PATIENT
  Age: 69 Year
  Sex: Female
  Weight: 56.25 kg

DRUGS (4)
  1. ATIVAN [Suspect]
     Active Substance: LORAZEPAM
     Indication: ANXIETY
  2. ATIVAN [Suspect]
     Active Substance: LORAZEPAM
     Indication: CEREBROVASCULAR ACCIDENT
  3. ATIVAN [Suspect]
     Active Substance: LORAZEPAM
     Indication: INSOMNIA
  4. TRAZODONE [Suspect]
     Active Substance: TRAZODONE HYDROCHLORIDE

REACTIONS (9)
  - Eyelid ptosis [None]
  - Loss of consciousness [None]
  - Withdrawal syndrome [None]
  - Mobility decreased [None]
  - Hypertension [None]
  - Heart rate increased [None]
  - Cognitive disorder [None]
  - Speech disorder [None]
  - Amnesia [None]

NARRATIVE: CASE EVENT DATE: 20170623
